FAERS Safety Report 25188583 (Version 3)
Quarter: 2025Q2

REPORT INFORMATION
  Report Type: Report from Study
  Country: CA (occurrence: CA)
  Receive Date: 20250411
  Receipt Date: 20250530
  Transmission Date: 20250716
  Serious: Yes (Other)
  Sender: TAKEDA
  Company Number: CA-TAKEDA-2024TUS053608

PATIENT
  Age: 64 Year
  Sex: Male

DRUGS (19)
  1. VEDOLIZUMAB [Suspect]
     Active Substance: VEDOLIZUMAB
     Indication: Crohn^s disease
     Dates: start: 20180808, end: 20250430
  2. VEDOLIZUMAB [Suspect]
     Active Substance: VEDOLIZUMAB
     Dosage: 300 MILLIGRAM, Q4WEEKS
     Dates: start: 20190621
  3. VEDOLIZUMAB [Suspect]
     Active Substance: VEDOLIZUMAB
     Dosage: 300 MILLIGRAM, Q4WEEKS
  4. VEDOLIZUMAB [Suspect]
     Active Substance: VEDOLIZUMAB
     Dosage: 300 MILLIGRAM, Q4WEEKS
  5. VEDOLIZUMAB [Suspect]
     Active Substance: VEDOLIZUMAB
     Dosage: 300 MILLIGRAM, Q4WEEKS
  6. VEDOLIZUMAB [Suspect]
     Active Substance: VEDOLIZUMAB
     Dosage: 300 MILLIGRAM, Q4WEEKS
     Dates: end: 20250430
  7. TRIAZOLAM [Concomitant]
     Active Substance: TRIAZOLAM
  8. ENTOCORT [Concomitant]
     Active Substance: BUDESONIDE
  9. GABAPENTIN [Concomitant]
     Active Substance: GABAPENTIN
  10. FOLIC ACID [Concomitant]
     Active Substance: FOLIC ACID
  11. KENALOG [Concomitant]
     Active Substance: TRIAMCINOLONE ACETONIDE
  12. MIRABEGRON [Concomitant]
     Active Substance: MIRABEGRON
  13. MORPHINE [Concomitant]
     Active Substance: MORPHINE
  14. PANTOPRAZOLE [Concomitant]
     Active Substance: PANTOPRAZOLE
  15. OXYCODONE [Concomitant]
     Active Substance: OXYCODONE
  16. B12 [Concomitant]
  17. METHOTREXATE [Concomitant]
     Active Substance: METHOTREXATE
  18. MORPHINE [Concomitant]
     Active Substance: MORPHINE
  19. VITAMIN D [Concomitant]
     Active Substance: VITAMIN D NOS

REACTIONS (9)
  - Crohn^s disease [Unknown]
  - Abdominal discomfort [Not Recovered/Not Resolved]
  - Respiratory tract congestion [Unknown]
  - Malaise [Recovered/Resolved]
  - Nasopharyngitis [Not Recovered/Not Resolved]
  - Oropharyngeal pain [Recovering/Resolving]
  - Pyrexia [Unknown]
  - Vomiting [Recovered/Resolved]
  - Nausea [Recovered/Resolved]

NARRATIVE: CASE EVENT DATE: 20240603
